FAERS Safety Report 9391860 (Version 3)
Quarter: 2013Q3

REPORT INFORMATION
  Report Type: Spontaneous
  Country: GB (occurrence: GB)
  Receive Date: 20130709
  Receipt Date: 20130725
  Transmission Date: 20140515
  Serious: Yes (Disabling, Other)
  Sender: FDA-Public Use
  Company Number: GB-ASTRAZENECA-2013SE49858

PATIENT
  Age: 63 Year
  Sex: Male
  Weight: 59 kg

DRUGS (7)
  1. OMEPRAZOLE [Suspect]
     Route: 048
  2. OMEPRAZOLE [Interacting]
     Dosage: REDUCED DOSE
     Route: 048
  3. VFEND [Interacting]
     Indication: CEREBRAL ASPERGILLOSIS
     Dosage: 6 MG/KG FOR 2 DOSES
     Route: 042
     Dates: start: 20130227
  4. VFEND [Interacting]
     Indication: CEREBRAL ASPERGILLOSIS
     Route: 042
  5. VFEND [Interacting]
     Indication: CEREBRAL ASPERGILLOSIS
     Dosage: 6 MG/L 2X/DAY
     Route: 042
  6. VFEND [Interacting]
     Indication: CEREBRAL ASPERGILLOSIS
     Route: 042
     Dates: start: 20130308
  7. CHEMOTHERAPY NOS [Concomitant]

REACTIONS (5)
  - Drug interaction [Not Recovered/Not Resolved]
  - Drug level increased [Not Recovered/Not Resolved]
  - Cerebral aspergillosis [Unknown]
  - Toxicity to various agents [Not Recovered/Not Resolved]
  - Gastrointestinal necrosis [Unknown]
